FAERS Safety Report 11772393 (Version 1)
Quarter: 2015Q4

REPORT INFORMATION
  Report Type: Spontaneous
  Country: US (occurrence: US)
  Receive Date: 20151124
  Receipt Date: 20151124
  Transmission Date: 20160304
  Serious: No
  Sender: FDA-Public Use
  Company Number: US-BAYER-2015-465434

PATIENT
  Age: 87 Year
  Sex: Male
  Weight: 75.28 kg

DRUGS (1)
  1. ALEVE [Suspect]
     Active Substance: NAPROXEN SODIUM
     Indication: ANALGESIC THERAPY
     Dosage: 2 DF, BID
     Route: 065

REACTIONS (3)
  - Product use issue [None]
  - Product use issue [Unknown]
  - Blood pressure increased [Unknown]
